FAERS Safety Report 9787685 (Version 1)
Quarter: 2013Q4

REPORT INFORMATION
  Report Type: Spontaneous
  Country: IT (occurrence: None)
  Receive Date: 20131226
  Receipt Date: 20131226
  Transmission Date: 20140711
  Serious: Yes (Other)
  Sender: FDA-Public Use
  Company Number: FK201305414

PATIENT
  Age: 53 Year
  Sex: Female

DRUGS (1)
  1. CEFTRIAXON [Suspect]
     Indication: ANTIBIOTIC PROPHYLAXIS
     Dates: start: 20131114, end: 20131114

REACTIONS (1)
  - Anaphylactic shock [None]
